FAERS Safety Report 25044228 (Version 3)
Quarter: 2025Q3

REPORT INFORMATION
  Report Type: Spontaneous
  Country: JP (occurrence: JP)
  Receive Date: 20250306
  Receipt Date: 20250923
  Transmission Date: 20251021
  Serious: Yes (Death, Hospitalization, Other)
  Sender: ROCHE
  Company Number: JP-CHUGAI-2025006854

PATIENT
  Age: 74 Year
  Sex: Male
  Weight: 50.5 kg

DRUGS (4)
  1. TECENTRIQ [Suspect]
     Active Substance: ATEZOLIZUMAB
     Indication: Non-small cell lung cancer
     Dosage: 1200 MILLIGRAM, ONCE/MONTH
     Route: 042
     Dates: start: 20240731
  2. AVASTIN [Suspect]
     Active Substance: BEVACIZUMAB
     Indication: Non-small cell lung cancer
     Dosage: 700 MILLIGRAM, ONCE/MONTH
     Route: 042
     Dates: start: 20240731
  3. CARBOPLATIN [Concomitant]
     Active Substance: CARBOPLATIN
     Indication: Non-small cell lung cancer
     Route: 042
     Dates: start: 20240731, end: 20241218
  4. PACLITAXEL [Concomitant]
     Active Substance: PACLITAXEL
     Indication: Non-small cell lung cancer
     Route: 042
     Dates: start: 20240731, end: 20241218

REACTIONS (4)
  - Guillain-Barre syndrome [Recovering/Resolving]
  - Hepatocellular carcinoma [Unknown]
  - Lung adenocarcinoma [Fatal]
  - Bronchitis [Recovering/Resolving]

NARRATIVE: CASE EVENT DATE: 20250213
